FAERS Safety Report 4277494-8 (Version None)
Quarter: 2004Q1

REPORT INFORMATION
  Report Type: 
  Country: None (occurrence: None)
  Receive Date: 20040122
  Receipt Date: 20031222
  Transmission Date: 20041129
  Serious: Yes (Other)
  Sender: FDA-Public Use
  Company Number: GB-BRISTOL-MYERS SQUIBB COMPANY-12464178

PATIENT
  Age: 70 Year
  Sex: Female

DRUGS (1)
  1. SINEMET [Suspect]
     Indication: PARKINSON'S DISEASE
     Dosage: INITIAL DOSE-2 TABLETS THREE TIMES DAILY FOR 18 MONTHS, BEFORE REDUCING DOSE TO HALF OVER 5 DAYS.
     Route: 048

REACTIONS (8)
  - AMNESIA [None]
  - ANXIETY [None]
  - ASTHENIA [None]
  - DIFFICULTY IN WALKING [None]
  - FACIAL NERVE DISORDER [None]
  - MUSCULAR WEAKNESS [None]
  - SOMNOLENCE [None]
  - TREMOR [None]
